FAERS Safety Report 5959413-9 (Version None)
Quarter: 2008Q4

REPORT INFORMATION
  Report Type: 
  Country: None (occurrence: None)
  Receive Date: 20081120
  Receipt Date: 20080909
  Transmission Date: 20090506
  Serious: No
  Sender: FDA-Public Use
  Company Number: A0746569A

PATIENT
  Age: 37 Year
  Sex: Female

DRUGS (1)
  1. VERAMYST [Suspect]
     Route: 045
     Dates: start: 20080101

REACTIONS (1)
  - ACCIDENTAL EXPOSURE [None]
